FAERS Safety Report 4870148-6 (Version None)
Quarter: 2005Q4

REPORT INFORMATION
  Report Type: 
  Country: None (occurrence: None)
  Receive Date: 20051229
  Receipt Date: 20051229
  Transmission Date: 20060501
  Serious: Yes (Hospitalization)
  Sender: FDA-Public Use
  Company Number: None

PATIENT
  Age: 79 Year
  Sex: Male
  Weight: 61.2356 kg

DRUGS (15)
  1. BEVACIZUMAB,   15 MG/KG [Suspect]
     Indication: NON-SMALL CELL LUNG CANCER
     Dosage: 15MG/KG,  21 DAYS/ IV
     Route: 042
  2. GENTAMICIN [Concomitant]
  3. UNASYN [Concomitant]
  4. PROTONIX [Concomitant]
  5. DOPAMINE [Concomitant]
  6. FLUCONAZOLE [Concomitant]
  7. REGLAN [Concomitant]
  8. TYLENOL [Concomitant]
  9. FERROUS SULFATE TAB [Concomitant]
  10. TIGAN [Concomitant]
  11. ZOCOR [Concomitant]
  12. COLACE [Concomitant]
  13. SENNA [Concomitant]
  14. MILK OF MAGNESIA TAB [Concomitant]
  15. VALLIUM [Concomitant]

REACTIONS (6)
  - ASCITES [None]
  - DUODENAL ULCER PERFORATION [None]
  - EXTRAVASATION [None]
  - HYPOTENSION [None]
  - METASTASES TO SPINE [None]
  - PATHOLOGICAL FRACTURE [None]
